FAERS Safety Report 5414793-8 (Version None)
Quarter: 2007Q3

REPORT INFORMATION
  Report Type: 
  Country: None (occurrence: None)
  Receive Date: 20070713
  Receipt Date: 20070502
  Transmission Date: 20080115
  Serious: Yes (Hospitalization)
  Sender: FDA-Public Use
  Company Number: US-JNJFOC-20070300338

PATIENT
  Age: 27 Year
  Sex: Female
  Weight: 61.6892 kg

DRUGS (9)
  1. ORTHO EVRA [Suspect]
     Indication: CONTRACEPTION
     Dosage: 1 DOSE(S), 3 IN 4 WEEK, TRANSDERMAL
     Route: 062
     Dates: start: 20040501, end: 20050320
  2. GEODON [Concomitant]
  3. LAMICTAL [Concomitant]
  4. KLONOPIN [Concomitant]
  5. SEROQUEL [Concomitant]
  6. VICODIN [Concomitant]
  7. ADDERALL (OBETROL) [Concomitant]
  8. PAXIL [Concomitant]
  9. DOXYCYCLINE [Concomitant]

REACTIONS (2)
  - DEEP VEIN THROMBOSIS [None]
  - PULMONARY EMBOLISM [None]
